FAERS Safety Report 5820507-X (Version None)
Quarter: 2008Q3

REPORT INFORMATION
  Report Type: 
  Country: None (occurrence: None)
  Receive Date: 20080724
  Receipt Date: 20070829
  Transmission Date: 20090109
  Serious: No
  Sender: FDA-Public Use
  Company Number: A0677400A

PATIENT
  Age: 55 Year
  Sex: Female

DRUGS (6)
  1. AVANDIA [Suspect]
     Dosage: 8MG TWICE PER DAY
     Route: 048
  2. LEVOTHYROXINE SODIUM [Concomitant]
  3. FUROSEMIDE [Concomitant]
  4. LISINOPRIL [Concomitant]
  5. METOPROLOL TARTRATE [Concomitant]
  6. INSULIN [Concomitant]

REACTIONS (1)
  - ALOPECIA [None]
